FAERS Safety Report 16841397 (Version 3)
Quarter: 2020Q3

REPORT INFORMATION
  Report Type: Report from Study
  Country: CA (occurrence: CA)
  Receive Date: 20190923
  Receipt Date: 20200818
  Transmission Date: 20201102
  Serious: No
  Sender: FDA-Public Use
  Company Number: CA-GLAXOSMITHKLINE-CA2019AMR166907

PATIENT
  Sex: Female

DRUGS (2)
  1. MEPOLIZUMAB [Suspect]
     Active Substance: MEPOLIZUMAB
     Indication: ASTHMA
     Dosage: 100 MG, Z, (MONTHLY)
     Route: 042
     Dates: start: 20170117
  2. MEPOLIZUMAB [Suspect]
     Active Substance: MEPOLIZUMAB
     Dosage: 100 MG, ZMONTHLY
     Route: 042
     Dates: start: 20170117

REACTIONS (3)
  - Wheezing [Recovered/Resolved]
  - Asthma [Unknown]
  - Dyspnoea [Unknown]
